FAERS Safety Report 5384103-3 (Version None)
Quarter: 2007Q3

REPORT INFORMATION
  Report Type: 
  Country: None (occurrence: None)
  Receive Date: 20070711
  Receipt Date: 20070702
  Transmission Date: 20080115
  Serious: Yes (Hospitalization)
  Sender: FDA-Public Use
  Company Number: US-MERCK-0707USA00312

PATIENT
  Age: 67 Year
  Sex: Male

DRUGS (13)
  1. FOSAMAX PLUS D [Suspect]
     Indication: OSTEOPOROSIS
     Route: 048
     Dates: end: 20070101
  2. FOSAMAX PLUS D [Suspect]
     Route: 048
     Dates: start: 20070101
  3. SPIRIVA [Concomitant]
     Route: 065
  4. ADVAIR DISKUS 100/50 [Concomitant]
     Route: 065
  5. COMBIVENT [Concomitant]
     Route: 065
  6. ALBUTEROL [Concomitant]
     Route: 065
  7. CARDIZEM [Concomitant]
     Route: 065
  8. DIOVAN [Concomitant]
     Route: 065
  9. COREG [Concomitant]
     Route: 065
  10. WELLBUTRIN [Concomitant]
     Route: 065
  11. TRAZODONE HYDROCHLORIDE [Concomitant]
     Route: 065
  12. KLONOPIN [Concomitant]
     Route: 065
  13. CHANTIX [Concomitant]
     Route: 065

REACTIONS (5)
  - ADVERSE EVENT [None]
  - GASTROOESOPHAGEAL REFLUX DISEASE [None]
  - MUSCULAR WEAKNESS [None]
  - MYALGIA [None]
  - WHITE BLOOD CELL COUNT INCREASED [None]
